FAERS Safety Report 6388599-X (Version None)
Quarter: 2009Q4

REPORT INFORMATION
  Report Type: 
  Country: None (occurrence: None)
  Receive Date: 20091005
  Receipt Date: 20091001
  Transmission Date: 20100525
  Serious: Yes (Hospitalization, Other)
  Sender: FDA-Public Use
  Company Number: DE-ROXANE LABORATORIES, INC.-2009-RO-01022RO

PATIENT
  Age: 52 Year
  Sex: Male
  Weight: 100 kg

DRUGS (19)
  1. AZATHIOPRINE [Suspect]
     Indication: VASCULITIS
     Dosage: 50 MG
  2. METHOTREXATE [Suspect]
     Indication: VASCULITIS
  3. RAMIPRIL [Suspect]
     Dosage: 7.5 MG
  4. FUROSEMIDE [Suspect]
     Dosage: 20 MG
  5. PREDNISOLONE [Suspect]
     Indication: VASCULITIS
     Dosage: 250 MG
     Route: 042
  6. PREDNISOLONE [Suspect]
     Dosage: 100 MG
     Route: 048
  7. PREDNISOLONE [Suspect]
     Dosage: 30 MG
  8. PREDNISOLONE [Suspect]
     Dosage: 60 MG
  9. PANTOPRAZOLE SODIUM [Suspect]
     Dosage: 20 MG
  10. BISOPROLOL [Suspect]
     Dosage: 10 MG
  11. CHOLECALCIFEROL/CALCIUM CARBONATE [Suspect]
  12. PHENPROCOUMON [Suspect]
     Indication: ATRIAL FIBRILLATION
     Route: 048
  13. PIPERACILLIN [Concomitant]
     Indication: ANTIBIOTIC THERAPY
  14. SULBACTAM [Concomitant]
     Indication: ANTIBIOTIC THERAPY
  15. MOXIFLOXACIN HCL [Concomitant]
     Indication: ANTIBIOTIC THERAPY
  16. VANCOMYCIN [Concomitant]
     Indication: ANTIBIOTIC THERAPY
  17. IMIPENEM [Concomitant]
     Indication: ANTIBIOTIC THERAPY
  18. FLUCONAZOLE [Concomitant]
     Indication: ANTIBIOTIC THERAPY
  19. MYCOPHENOLATE MOFETIL [Concomitant]
     Indication: VASCULITIS

REACTIONS (13)
  - BLOOD BILIRUBIN INCREASED [None]
  - BLOOD CREATININE INCREASED [None]
  - C-REACTIVE PROTEIN INCREASED [None]
  - CHEST DISCOMFORT [None]
  - DYSPNOEA EXERTIONAL [None]
  - GASTROINTESTINAL DISORDER [None]
  - GENERAL PHYSICAL HEALTH DETERIORATION [None]
  - INFECTION [None]
  - LEUKOCYTOSIS [None]
  - MYOPATHY [None]
  - PYREXIA [None]
  - SKIN NODULE [None]
  - VASCULITIS [None]
